FAERS Safety Report 8816382 (Version 1)
Quarter: 2012Q4

REPORT INFORMATION
  Report Type: Spontaneous
  Country: US (occurrence: None)
  Receive Date: 20120928
  Receipt Date: 20120928
  Transmission Date: 20130627
  Serious: Yes (Hospitalization)
  Sender: FDA-Public Use
  Company Number: None

PATIENT
  Age: 84 Year
  Sex: Female
  Weight: 51.3 kg

DRUGS (7)
  1. ASA [Suspect]
     Indication: CORONARY ARTERY DISEASE
     Route: 048
  2. CAFFEINE\SALICYLAMIDE [Suspect]
     Indication: CHRONIC BACK PAIN
     Route: 048
  3. MIRALAX [Concomitant]
  4. OMEPRAZOLE [Concomitant]
  5. LASIX [Concomitant]
  6. ISOSORBIDE DINITRATE [Concomitant]
  7. ATENOLOL [Concomitant]

REACTIONS (6)
  - Small intestinal haemorrhage [None]
  - Large intestinal haemorrhage [None]
  - Gastritis [None]
  - Duodenal ulcer [None]
  - Gastrointestinal haemorrhage [None]
  - Haematocrit decreased [None]
